FAERS Safety Report 6162093-3 (Version None)
Quarter: 2009Q2

REPORT INFORMATION
  Report Type: 
  Country: None (occurrence: None)
  Receive Date: 20090417
  Receipt Date: 20090417
  Transmission Date: 20091009
  Serious: No
  Sender: FDA-Public Use
  Company Number: None

PATIENT
  Age: 63 Year
  Sex: Female

DRUGS (6)
  1. LISINOPRIL [Suspect]
     Indication: HYPERTENSION
     Dosage: 20 MG 1QD
  2. METHOTREXATE [Concomitant]
  3. RELPAX [Concomitant]
  4. ASPIRIN [Concomitant]
  5. FOLIC ACID [Concomitant]
  6. GLUCOSAMINE [Concomitant]

REACTIONS (6)
  - BLOOD PRESSURE INCREASED [None]
  - FLUID RETENTION [None]
  - HEADACHE [None]
  - MYALGIA [None]
  - PRODUCT SUBSTITUTION ISSUE [None]
  - THERAPEUTIC RESPONSE DECREASED [None]
